FAERS Safety Report 5585267-9 (Version None)
Quarter: 2008Q1

REPORT INFORMATION
  Report Type: 
  Country: None (occurrence: None)
  Receive Date: 20080108
  Receipt Date: 20080108
  Transmission Date: 20080703
  Serious: Yes (Other)
  Sender: FDA-Public Use
  Company Number: None

PATIENT
  Age: 50 Year
  Sex: Female

DRUGS (4)
  1. ADVICOR [Suspect]
     Dates: start: 20060814, end: 20061213
  2. VALTREX [Suspect]
     Dates: start: 20061121, end: 20061206
  3. AMBIEN [Concomitant]
  4. PAXIL [Concomitant]

REACTIONS (17)
  - ALANINE AMINOTRANSFERASE INCREASED [None]
  - ANOREXIA [None]
  - ASPARTATE AMINOTRANSFERASE INCREASED [None]
  - ASTHENIA [None]
  - BLOOD ALBUMIN DECREASED [None]
  - CHROMATURIA [None]
  - DECREASED APPETITE [None]
  - FALSE POSITIVE LABORATORY RESULT [None]
  - HEPATOCELLULAR INJURY [None]
  - HYPERHIDROSIS [None]
  - INFLUENZA LIKE ILLNESS [None]
  - LIVER FUNCTION TEST ABNORMAL [None]
  - LIVER INJURY [None]
  - NO THERAPEUTIC RESPONSE [None]
  - OCULAR ICTERUS [None]
  - PHARYNGOLARYNGEAL PAIN [None]
  - RETCHING [None]
